FAERS Safety Report 23637200 (Version 2)
Quarter: 2024Q2

REPORT INFORMATION
  Report Type: Spontaneous
  Country: US (occurrence: US)
  Receive Date: 20240315
  Receipt Date: 20240430
  Transmission Date: 20240716
  Serious: No
  Sender: FDA-Public Use
  Company Number: US-PFIZER INC-PV202400035322

PATIENT
  Age: 64 Year
  Sex: Female
  Weight: 56.2 kg

DRUGS (2)
  1. PAXLOVID [Suspect]
     Active Substance: NIRMATRELVIR\RITONAVIR
     Indication: COVID-19 treatment
     Dosage: 3 DF, 2X/DAY (FOLLOWED PACKAGE DIRECTIONS)
     Dates: start: 2024, end: 2024
  2. LACTOSE [Suspect]
     Active Substance: LACTOSE
     Dosage: UNK
     Dates: start: 2024, end: 2024

REACTIONS (3)
  - Reaction to excipient [Recovered/Resolved]
  - Proctalgia [Recovered/Resolved]
  - Tissue irritation [Recovered/Resolved]

NARRATIVE: CASE EVENT DATE: 20240101
